FAERS Safety Report 7071088-7 (Version None)
Quarter: 2010Q4

REPORT INFORMATION
  Report Type: 
  Country: None (occurrence: None)
  Receive Date: 20101029
  Receipt Date: 20101025
  Transmission Date: 20110411
  Serious: No
  Sender: FDA-Public Use
  Company Number: US-PFIZER INC-2010136897

PATIENT
  Sex: Male

DRUGS (2)
  1. SERTRALINE HYDROCHLORIDE [Suspect]
     Dosage: UNK
     Dates: end: 20100101
  2. PRISTIQ [Suspect]
     Dosage: UNK
     Dates: start: 20101001

REACTIONS (2)
  - DECREASED APPETITE [None]
  - WEIGHT DECREASED [None]
